FAERS Safety Report 8360078-X (Version None)
Quarter: 2012Q2

REPORT INFORMATION
  Report Type: 
  Country: None (occurrence: None)
  Receive Date: 20120515
  Receipt Date: 20110526
  Transmission Date: 20120825
  Serious: No
  Sender: FDA-Public Use
  Company Number: US-ALEXION-A201100746

PATIENT
  Sex: Female
  Weight: 295.5 kg

DRUGS (3)
  1. EXJADE [Concomitant]
     Indication: IRON OVERLOAD
     Dosage: UNK
  2. SOLIRIS [Suspect]
     Indication: PAROXYSMAL NOCTURNAL HAEMOGLOBINURIA
     Dosage: 600 MG, QW
     Route: 042
     Dates: start: 20110120, end: 20110210
  3. SOLIRIS [Suspect]
     Dosage: 900 MG, Q2W
     Route: 042
     Dates: start: 20110217

REACTIONS (3)
  - TRANSFUSION [None]
  - ASTHENIA [None]
  - IRON OVERLOAD [None]
